FAERS Safety Report 25302969 (Version 1)
Quarter: 2025Q2

REPORT INFORMATION
  Report Type: Report from Study
  Country: JP (occurrence: JP)
  Receive Date: 20250512
  Receipt Date: 20250512
  Transmission Date: 20250716
  Serious: Yes (Other)
  Sender: ABBVIE
  Company Number: JP-ABBVIE-5787715

PATIENT
  Age: 74 Year
  Sex: Male

DRUGS (1)
  1. VYALEV [Suspect]
     Active Substance: FOSCARBIDOPA\FOSLEVODOPA
     Indication: Parkinson^s disease
     Route: 058
     Dates: start: 20240514

REACTIONS (20)
  - Head injury [Recovering/Resolving]
  - Infusion site reaction [Unknown]
  - On and off phenomenon [Unknown]
  - Infusion site reaction [Unknown]
  - Dyskinesia [Unknown]
  - Mobility decreased [Unknown]
  - Malaise [Unknown]
  - Fall [Recovering/Resolving]
  - Infusion site discolouration [Unknown]
  - Infusion site reaction [Unknown]
  - Therapeutic product effect incomplete [Unknown]
  - Dizziness [Unknown]
  - Puncture site erythema [Unknown]
  - Puncture site pruritus [Unknown]
  - Hypoaesthesia [Unknown]
  - Infusion site irritation [Unknown]
  - Fall [Unknown]
  - Product storage error [Unknown]
  - Puncture site swelling [Recovered/Resolved]
  - Gait disturbance [Unknown]

NARRATIVE: CASE EVENT DATE: 20240529
